FAERS Safety Report 23973905 (Version 3)
Quarter: 2024Q3

REPORT INFORMATION
  Report Type: Spontaneous
  Country: US (occurrence: US)
  Receive Date: 20240613
  Receipt Date: 20240723
  Transmission Date: 20241016
  Serious: No
  Sender: BAUSCH AND LOMB
  Company Number: US-BAUSCHBL-2024BNL028308

PATIENT
  Age: 24 Year
  Sex: Male
  Weight: 72.57 kg

DRUGS (2)
  1. LUMIFY [Suspect]
     Active Substance: BRIMONIDINE TARTRATE
     Indication: Ocular hyperaemia
     Route: 047
     Dates: start: 20240605, end: 20240605
  2. LUMIFY [Suspect]
     Active Substance: BRIMONIDINE TARTRATE

REACTIONS (6)
  - Eye irritation [Recovered/Resolved]
  - Product colour issue [Unknown]
  - Product lot number issue [Unknown]
  - Product expiration date issue [Unknown]
  - Product quality issue [Unknown]
  - Product container issue [Unknown]

NARRATIVE: CASE EVENT DATE: 20240605
